FAERS Safety Report 21410598 (Version 6)
Quarter: 2023Q2

REPORT INFORMATION
  Report Type: Report from Study
  Country: JP (occurrence: JP)
  Receive Date: 20221005
  Receipt Date: 20230623
  Transmission Date: 20230721
  Serious: Yes (Hospitalization, Other)
  Sender: FDA-Public Use
  Company Number: JP-NOVARTISPH-NVSJ2022JP095670

PATIENT
  Age: 5 Year
  Sex: Female
  Weight: 22 kg

DRUGS (23)
  1. ILARIS [Suspect]
     Active Substance: CANAKINUMAB
     Indication: Still^s disease
     Dosage: 100 MG
     Route: 058
     Dates: start: 20220228
  2. ILARIS [Suspect]
     Active Substance: CANAKINUMAB
     Dosage: 100 MG
     Route: 058
     Dates: start: 20220328
  3. ILARIS [Suspect]
     Active Substance: CANAKINUMAB
     Dosage: 100 MG
     Route: 058
     Dates: start: 20220425
  4. ILARIS [Suspect]
     Active Substance: CANAKINUMAB
     Dosage: 104 MG
     Route: 058
     Dates: start: 20220523
  5. ILARIS [Suspect]
     Active Substance: CANAKINUMAB
     Dosage: 100 MG
     Route: 058
     Dates: start: 20220620
  6. ILARIS [Suspect]
     Active Substance: CANAKINUMAB
     Dosage: 100 MG
     Route: 058
     Dates: start: 20220719
  7. ILARIS [Suspect]
     Active Substance: CANAKINUMAB
     Dosage: 100 MG
     Route: 058
     Dates: start: 20220815
  8. ILARIS [Suspect]
     Active Substance: CANAKINUMAB
     Dosage: 106.35 MG
     Route: 058
     Dates: start: 20220912
  9. ILARIS [Suspect]
     Active Substance: CANAKINUMAB
     Dosage: 108 MG
     Route: 058
     Dates: start: 20221011
  10. ILARIS [Suspect]
     Active Substance: CANAKINUMAB
     Dosage: 108 MG
     Route: 058
     Dates: start: 20221108
  11. ILARIS [Suspect]
     Active Substance: CANAKINUMAB
     Dosage: 107 MG
     Route: 058
     Dates: start: 20221206
  12. ILARIS [Suspect]
     Active Substance: CANAKINUMAB
     Dosage: 105.2 MG
     Route: 058
     Dates: start: 20230104
  13. ILARIS [Suspect]
     Active Substance: CANAKINUMAB
     Dosage: 105.2 MG
     Route: 058
     Dates: start: 20230131
  14. ILARIS [Suspect]
     Active Substance: CANAKINUMAB
     Dosage: 105 MG
     Route: 058
     Dates: start: 20230228
  15. CYCLOSPORINE [Suspect]
     Active Substance: CYCLOSPORINE
     Indication: Still^s disease
     Dosage: 30 MG
     Route: 041
     Dates: start: 20220228, end: 20220406
  16. PREDNISOLONE [Concomitant]
     Active Substance: PREDNISOLONE
     Indication: Still^s disease
     Dosage: 18 MG
     Route: 048
     Dates: start: 20220119
  17. DEXAMETHASONE [Concomitant]
     Active Substance: DEXAMETHASONE
     Indication: Still^s disease
     Dosage: 7.5 MG
     Route: 065
     Dates: start: 20220228, end: 20220307
  18. THROMBOMODULIN ALFA [Concomitant]
     Active Substance: THROMBOMODULIN ALFA
     Indication: Still^s disease
     Dosage: 8320 U
     Route: 065
     Dates: start: 20220228, end: 20220301
  19. PREDONINE [Concomitant]
     Active Substance: PREDNISOLONE
     Indication: Still^s disease
     Dosage: 30 MG
     Route: 065
     Dates: start: 20220308, end: 20220314
  20. NEORAL [Concomitant]
     Active Substance: CYCLOSPORINE
     Indication: Still^s disease
     Dosage: 10 MG
     Route: 048
     Dates: start: 20220406, end: 20221011
  21. SULFAMETHOXAZOLE\TRIMETHOPRIM [Concomitant]
     Active Substance: SULFAMETHOXAZOLE\TRIMETHOPRIM
     Indication: Product used for unknown indication
     Dosage: 1.5 G
     Route: 048
     Dates: start: 20220220, end: 20221011
  22. BONALON [Concomitant]
     Active Substance: ALENDRONATE SODIUM
     Indication: Product used for unknown indication
     Dosage: 1 PACKET
     Route: 048
     Dates: start: 20220210
  23. FAMOTIDINE [Concomitant]
     Active Substance: FAMOTIDINE
     Indication: Product used for unknown indication
     Dosage: 10 MG
     Route: 048
     Dates: start: 20220128

REACTIONS (12)
  - COVID-19 [Recovered/Resolved]
  - Pyrexia [Recovered/Resolved]
  - Oropharyngeal pain [Recovered/Resolved]
  - Headache [Recovered/Resolved]
  - White blood cell count decreased [Recovered/Resolved]
  - Neutrophil count decreased [Recovered/Resolved]
  - Lymphocyte count decreased [Recovered/Resolved]
  - Bacteraemia [Recovered/Resolved]
  - Pyrexia [Unknown]
  - COVID-19 [Recovered/Resolved]
  - Gamma-glutamyltransferase increased [Unknown]
  - Product use in unapproved indication [Unknown]

NARRATIVE: CASE EVENT DATE: 20220228
